FAERS Safety Report 25631757 (Version 1)
Quarter: 2025Q3

REPORT INFORMATION
  Report Type: Other
  Country: US (occurrence: US)
  Receive Date: 20250801
  Receipt Date: 20250801
  Transmission Date: 20251021
  Serious: Yes (Life-Threatening, Hospitalization, Other)
  Sender: ZHEJIANG YONGTAI
  Company Number: US-Zhejiang Yongtai pharmaceuticals Co..,Ltd.-2181639

PATIENT
  Age: 60 Year
  Sex: Female

DRUGS (6)
  1. GABAPENTIN [Suspect]
     Active Substance: GABAPENTIN
     Indication: Product used for unknown indication
  2. BUPROPION [Suspect]
     Active Substance: BUPROPION
  3. ANASTROZOLE [Concomitant]
     Active Substance: ANASTROZOLE
  4. PIPERACILLIN AND TAZOBACTAM [Suspect]
     Active Substance: PIPERACILLIN SODIUM\TAZOBACTAM SODIUM
  5. VANCOMYCIN HYDROCHLORIDE [Suspect]
     Active Substance: VANCOMYCIN HYDROCHLORIDE
  6. QUETIAPINE [Suspect]
     Active Substance: QUETIAPINE

REACTIONS (12)
  - Shock [Recovering/Resolving]
  - Intentional product misuse [Unknown]
  - Intentional overdose [Unknown]
  - Epilepsy [Recovering/Resolving]
  - Nervous system disorder [Recovering/Resolving]
  - Blood thyroid stimulating hormone decreased [Recovering/Resolving]
  - Lactic acidosis [Recovering/Resolving]
  - Areflexia [Recovering/Resolving]
  - Myoclonus [Recovering/Resolving]
  - Hypotension [Recovering/Resolving]
  - Coma [Recovering/Resolving]
  - Neurotoxicity [Recovering/Resolving]
